FAERS Safety Report 6369745-0 (Version None)
Quarter: 2009Q3

REPORT INFORMATION
  Report Type: 
  Country: None (occurrence: None)
  Receive Date: 20090918
  Receipt Date: 20090902
  Transmission Date: 20100115
  Serious: Yes (Other)
  Sender: FDA-Public Use
  Company Number: JPI-P-008469

PATIENT
  Age: 39 Year
  Sex: Female
  Weight: 101.6057 kg

DRUGS (13)
  1. XYREM [Suspect]
     Indication: NARCOLEPSY
     Dosage: SEE IMAGE
     Route: 048
     Dates: start: 20090805, end: 20090811
  2. XYREM [Suspect]
     Indication: NARCOLEPSY
     Dosage: SEE IMAGE
     Route: 048
     Dates: start: 20090812, end: 20090818
  3. XYREM [Suspect]
     Indication: NARCOLEPSY
     Dosage: SEE IMAGE
     Route: 048
     Dates: start: 20090819, end: 20090825
  4. XYREM [Suspect]
     Indication: NARCOLEPSY
     Dosage: SEE IMAGE
     Route: 048
     Dates: start: 20090826, end: 20090901
  5. PANTOPRAZOLE SODIUM [Concomitant]
  6. ATORVASTATIN CALCIUM [Concomitant]
  7. OMEGA 3 FISH OIL (CAPSULES) [Concomitant]
  8. ACETYLSALICYLIC ACID [Concomitant]
  9. CICLESONIDE (NASAL DROPS (INCLUDING NASAL SPRAY)) [Concomitant]
  10. METFORMIN HCL [Concomitant]
  11. ATENOLOL [Concomitant]
  12. CITALOPRAM HYDROBROMIDE [Concomitant]
  13. SODIUM CARBOXYMETHYL CELLULOSE [Concomitant]

REACTIONS (10)
  - DEHYDRATION [None]
  - DIARRHOEA [None]
  - DIZZINESS [None]
  - GAIT DISTURBANCE [None]
  - HYPERHIDROSIS [None]
  - NAUSEA [None]
  - TINNITUS [None]
  - VERTIGO [None]
  - VISION BLURRED [None]
  - VOMITING [None]
